FAERS Safety Report 7830363-6 (Version None)
Quarter: 2011Q4

REPORT INFORMATION
  Report Type: 
  Country: None (occurrence: None)
  Receive Date: 20111021
  Receipt Date: 20111010
  Transmission Date: 20120403
  Serious: Yes (Hospitalization)
  Sender: FDA-Public Use
  Company Number: FR-PFIZER INC-2011240912

PATIENT
  Age: 33 Year
  Sex: Male
  Weight: 63 kg

DRUGS (2)
  1. CRIZOTINIB [Suspect]
     Indication: NON-SMALL CELL LUNG CANCER
     Dosage: CONTINUOUS 250 MG, 2X/DAY
     Route: 048
     Dates: start: 20110916, end: 20111002
  2. CRIZOTINIB [Suspect]
     Dosage: 200 MG, 2X/DAY
     Dates: start: 20111010

REACTIONS (2)
  - WEIGHT DECREASED [None]
  - COUGH [None]
